FAERS Safety Report 7146185-8 (Version None)
Quarter: 2010Q4

REPORT INFORMATION
  Report Type: 
  Country: None (occurrence: None)
  Receive Date: 20101208
  Receipt Date: 20101126
  Transmission Date: 20110411
  Serious: Yes (Other)
  Sender: FDA-Public Use
  Company Number: PHHY2010US80862

PATIENT
  Sex: Male

DRUGS (16)
  1. GLEEVEC [Suspect]
     Indication: MASTOCYTOSIS
     Dosage: 400 MG, QD
  2. PLAVIX [Concomitant]
  3. ZOCOR [Concomitant]
  4. LISINOPRIL [Concomitant]
  5. OMEPRAZOLE [Concomitant]
  6. ASPIRIN [Concomitant]
  7. VICODIN [Concomitant]
  8. GLIPIZIDE [Concomitant]
  9. MULTI-VIT [Concomitant]
  10. ZANTAC [Concomitant]
  11. CROMOLYN SODIUM [Concomitant]
  12. LEVEMIR [Concomitant]
  13. PAXIL [Concomitant]
  14. INSULIN [Concomitant]
  15. XANAX [Concomitant]
  16. ALBUTEROL [Concomitant]

REACTIONS (1)
  - GENERAL PHYSICAL HEALTH DETERIORATION [None]
